FAERS Safety Report 7125570-4 (Version None)
Quarter: 2010Q4

REPORT INFORMATION
  Report Type: 
  Country: None (occurrence: None)
  Receive Date: 20101129
  Receipt Date: 20101119
  Transmission Date: 20110411
  Serious: Yes (Hospitalization)
  Sender: FDA-Public Use
  Company Number: CO-PFIZER INC-2010144076

PATIENT
  Age: 72 Year
  Sex: Male

DRUGS (5)
  1. LIPITOR [Suspect]
     Indication: DYSLIPIDAEMIA
     Dosage: 10 MG, 1X/DAY
     Route: 048
     Dates: start: 20071203
  2. OLMETEC [Suspect]
     Indication: HYPERTENSION
     Dosage: 20/ 12.5 MG EVERY DAY
     Route: 048
     Dates: start: 20071203
  3. LOSARTAN [Concomitant]
     Dosage: 50 MG, 2X/DAY EVERY 12 HOURS
  4. ACETYLSALICYLIC ACID [Concomitant]
     Dosage: 100 MG, 1X/DAY
  5. LOVASTATIN [Concomitant]
     Dosage: 20 MG, 1X/DAY

REACTIONS (2)
  - ACUTE MYOCARDIAL INFARCTION [None]
  - RESPIRATORY ARREST [None]
